FAERS Safety Report 18997008 (Version 1)
Quarter: 2021Q1

REPORT INFORMATION
  Report Type: Spontaneous
  Country: US (occurrence: US)
  Receive Date: 20210311
  Receipt Date: 20210311
  Transmission Date: 20210420
  Serious: No
  Sender: FDA-Public Use
  Company Number: None

PATIENT
  Sex: Female

DRUGS (1)
  1. ALENDRONATE SODIUM TABS 4^S 70 MG [Suspect]
     Active Substance: ALENDRONATE SODIUM

REACTIONS (1)
  - Drug ineffective [None]
